FAERS Safety Report 9333154 (Version 1)
Quarter: 2013Q2

REPORT INFORMATION
  Report Type: Report from Study
  Country: US (occurrence: US)
  Receive Date: 20130606
  Receipt Date: 20130606
  Transmission Date: 20140414
  Serious: Yes (Hospitalization)
  Sender: FDA-Public Use
  Company Number: US-ABBOTT-13P-163-1097091-00

PATIENT
  Age: 13 Year
  Sex: Male

DRUGS (9)
  1. HUMIRA [Suspect]
     Indication: CROHN^S DISEASE
     Dosage: 40 MG (0.8 ML)
     Route: 058
     Dates: start: 201302, end: 201306
  2. HUMIRA [Suspect]
     Indication: CROHN^S DISEASE
     Route: 058
     Dates: start: 201306
  3. METHOTREXATE [Concomitant]
     Indication: CROHN^S DISEASE
  4. VITAMIN D [Concomitant]
     Indication: VITAMIN D DEFICIENCY
  5. PREVACID [Concomitant]
     Indication: PRODUCT USED FOR UNKNOWN INDICATION
  6. CALCIUM [Concomitant]
     Indication: VITAMIN SUPPLEMENTATION
  7. FOLIC ACID [Concomitant]
     Indication: VITAMIN SUPPLEMENTATION
  8. SYNTHROID [Concomitant]
     Indication: HYPOTHYROIDISM
  9. MULTIPLE VITAMINS [Concomitant]
     Indication: VITAMIN SUPPLEMENTATION

REACTIONS (4)
  - Weight decreased [Unknown]
  - Gastrointestinal stoma complication [Unknown]
  - Crohn^s disease [Unknown]
  - Dehydration [Unknown]
